FAERS Safety Report 10188102 (Version 1)
Quarter: 2014Q2

REPORT INFORMATION
  Report Type: Spontaneous
  Country: US (occurrence: US)
  Receive Date: 20140522
  Receipt Date: 20140522
  Transmission Date: 20141212
  Serious: No
  Sender: FDA-Public Use
  Company Number: US-SA-2013SA099457

PATIENT
  Age: 53 Year
  Sex: Male

DRUGS (3)
  1. LANTUS SOLOSTAR [Suspect]
     Indication: TYPE 1 DIABETES MELLITUS
     Dosage: DOSE:6 UNIT(S)
     Route: 051
     Dates: start: 2012
  2. SOLOSTAR [Concomitant]
     Dates: start: 2012
  3. NOVOLOG [Concomitant]

REACTIONS (3)
  - Skin disorder [Unknown]
  - Injection site haemorrhage [Unknown]
  - Hypoglycaemia [Unknown]
